FAERS Safety Report 5613395-8 (Version None)
Quarter: 2008Q1

REPORT INFORMATION
  Report Type: 
  Country: None (occurrence: None)
  Receive Date: 20080129
  Receipt Date: 20080114
  Transmission Date: 20080703
  Serious: Yes (Disabling)
  Sender: FDA-Public Use
  Company Number: S08-UKI-00261-01

PATIENT
  Age: 48 Year
  Sex: Female
  Weight: 77 kg

DRUGS (5)
  1. CITALOPRAM HYDROBROMIDE [Suspect]
     Indication: DEPRESSION
     Dosage: 10 MG QD PO
     Route: 048
     Dates: start: 20071001, end: 20071019
  2. COD LIVER OIL [Concomitant]
  3. EVENING PRIMROSE (OENOTHERA BIENNIS OIL) [Concomitant]
  4. HYPERICUM (ST. JOHN'S WORT) [Concomitant]
  5. ASCORBIC ACID [Concomitant]

REACTIONS (2)
  - DIZZINESS [None]
  - HEADACHE [None]
